FAERS Safety Report 8127097 (Version 2)
Quarter: 2012Q4

REPORT INFORMATION
  Report Type: 
  Country: AU (occurrence: AU)
  Receive Date: 20110908
  Receipt Date: 20121030
  Transmission Date: 20130627
  Serious: Yes (Death)
  Sender: FDA-Public Use
  Company Number: AU-BAXTER-2011BH027956

PATIENT
  Age: 28 Year
  Sex: Male

DRUGS (1)
  1. ADVATE [Suspect]
     Indication: COAGULATION FACTOR VIII LEVEL
     Route: 042

REACTIONS (1)
  - Accident [Fatal]
